FAERS Safety Report 24927058 (Version 1)
Quarter: 2025Q1

REPORT INFORMATION
  Report Type: Report from Study
  Country: CA (occurrence: CA)
  Receive Date: 20250205
  Receipt Date: 20250205
  Transmission Date: 20250409
  Serious: Yes (Hospitalization, Other)
  Sender: TAKEDA
  Company Number: CA-TAKEDA-2025TUS012015

PATIENT
  Sex: Male

DRUGS (9)
  1. VEDOLIZUMAB [Suspect]
     Active Substance: VEDOLIZUMAB
     Indication: Colitis ulcerative
  2. PREDNISONE [Concomitant]
     Active Substance: PREDNISONE
  3. VENLAFAXINE [Concomitant]
     Active Substance: VENLAFAXINE HYDROCHLORIDE
  4. IMURAN [Concomitant]
     Active Substance: AZATHIOPRINE
  5. LAMOTRIGINE [Concomitant]
     Active Substance: LAMOTRIGINE
  6. BISOPROLOL [Concomitant]
     Active Substance: BISOPROLOL
  7. CANDESARTAN [Concomitant]
     Active Substance: CANDESARTAN
  8. Panto [Concomitant]
  9. HYDROCHLOROTHIAZIDE [Concomitant]
     Active Substance: HYDROCHLOROTHIAZIDE

REACTIONS (1)
  - Bell^s palsy [Recovered/Resolved]
